FAERS Safety Report 6568696-6 (Version None)
Quarter: 2010Q1

REPORT INFORMATION
  Report Type: 
  Country: None (occurrence: None)
  Receive Date: 20100203
  Receipt Date: 20100125
  Transmission Date: 20100710
  Serious: Yes (Other)
  Sender: FDA-Public Use
  Company Number: PHEH2010US01561

PATIENT
  Sex: Female

DRUGS (1)
  1. ELIDEL [Suspect]
     Dosage: UNK
     Dates: start: 20010201

REACTIONS (2)
  - DRUG EXPOSURE DURING PREGNANCY [None]
  - FEMALE STERILISATION [None]
